FAERS Safety Report 14898955 (Version 1)
Quarter: 2018Q2

REPORT INFORMATION
  Report Type: Spontaneous
  Country: CN (occurrence: CN)
  Receive Date: 20180515
  Receipt Date: 20180515
  Transmission Date: 20180711
  Serious: Yes (Death, Other)
  Sender: FDA-Public Use
  Company Number: CN-SUN PHARMACEUTICAL INDUSTRIES LTD-2018R1-172818

PATIENT
  Age: 65 Year
  Sex: Male

DRUGS (8)
  1. OXALIPLATIN. [Suspect]
     Active Substance: OXALIPLATIN
     Indication: CD20 ANTIGEN POSITIVE
  2. RITUXIMAB. [Suspect]
     Active Substance: RITUXIMAB
     Indication: T-CELL LYMPHOMA
     Route: 065
  3. L-ASPARAGINASE [Suspect]
     Active Substance: ASPARAGINASE
     Indication: CD20 ANTIGEN POSITIVE
  4. L-ASPARAGINASE [Suspect]
     Active Substance: ASPARAGINASE
     Indication: T-CELL LYMPHOMA
     Route: 065
  5. GEMCITABINE [Suspect]
     Active Substance: GEMCITABINE\GEMCITABINE HYDROCHLORIDE
     Indication: CD20 ANTIGEN POSITIVE
  6. OXALIPLATIN. [Suspect]
     Active Substance: OXALIPLATIN
     Indication: T-CELL LYMPHOMA
     Route: 065
  7. GEMCITABINE [Suspect]
     Active Substance: GEMCITABINE\GEMCITABINE HYDROCHLORIDE
     Indication: T-CELL LYMPHOMA
     Route: 065
  8. RITUXIMAB. [Suspect]
     Active Substance: RITUXIMAB
     Indication: CD20 ANTIGEN POSITIVE

REACTIONS (5)
  - Platelet count decreased [Unknown]
  - Anaemia [Unknown]
  - White blood cell count decreased [Unknown]
  - Pneumonia [Fatal]
  - Pyrexia [Unknown]
